FAERS Safety Report 4570254-X (Version None)
Quarter: 2005Q1

REPORT INFORMATION
  Report Type: 
  Country: None (occurrence: None)
  Receive Date: 20050202
  Receipt Date: 20050120
  Transmission Date: 20050727
  Serious: Yes (Hospitalization, Other)
  Sender: FDA-Public Use
  Company Number: 2004216828JP

PATIENT
  Age: 47 Year
  Sex: Female
  Weight: 50 kg

DRUGS (2)
  1. CAMPTOSAR [Suspect]
     Indication: PSEUDOMYXOMA PERITONEI
     Dosage: 170 MG (CYCLIC), INTRAVENOUS
     Route: 042
     Dates: start: 20040107, end: 20040511
  2. MITOMYCIN [Suspect]
     Indication: PSEUDOMYXOMA PERITONEI
     Dosage: 10 MG (CYCLIC), INTRAVENOUS
     Route: 042
     Dates: start: 20040107, end: 20040511

REACTIONS (3)
  - GENERALISED OEDEMA [None]
  - HAEMOLYTIC URAEMIC SYNDROME [None]
  - INTERSTITIAL LUNG DISEASE [None]
